FAERS Safety Report 13517684 (Version 1)
Quarter: 2017Q2

REPORT INFORMATION
  Report Type: Spontaneous
  Country: US (occurrence: US)
  Receive Date: 20170505
  Receipt Date: 20170505
  Transmission Date: 20170830
  Serious: Yes (Other)
  Sender: FDA-Public Use
  Company Number: US-NOVOPROD-543328

PATIENT
  Age: 70 Year
  Sex: Female
  Weight: 68.27 kg

DRUGS (2)
  1. LEVEMIR [Suspect]
     Active Substance: INSULIN DETEMIR
     Indication: DIABETES MELLITUS
     Dosage: UNK
     Route: 058
  2. NOVOLOG [Suspect]
     Active Substance: INSULIN ASPART
     Indication: DIABETES MELLITUS
     Dosage: UNK
     Route: 058

REACTIONS (4)
  - Fall [Unknown]
  - Arterial occlusive disease [Unknown]
  - Lower limb fracture [Unknown]
  - Injection site bruising [Unknown]

NARRATIVE: CASE EVENT DATE: 2012
